FAERS Safety Report 8343927-0 (Version None)
Quarter: 2012Q2

REPORT INFORMATION
  Report Type: 
  Country: None (occurrence: None)
  Receive Date: 20120508
  Receipt Date: 20120430
  Transmission Date: 20120825
  Serious: Yes (Death, Other)
  Sender: FDA-Public Use
  Company Number: US-BAYER-2011-039296

PATIENT
  Age: 69 Year
  Sex: Male
  Weight: 99 kg

DRUGS (33)
  1. MAGNEVIST [Suspect]
     Indication: BACK PAIN
     Dosage: UNK
     Dates: start: 20010320, end: 20010320
  2. MAGNEVIST [Suspect]
     Indication: ANGIOPLASTY
     Dosage: 10 ML, UNK
     Dates: start: 20021002, end: 20021002
  3. PROHANCE [Suspect]
     Indication: ANGIOGRAM
  4. POTASSIUM CHLORIDE [Concomitant]
     Dosage: 20 MEQ, BID
  5. MAGNEVIST [Suspect]
     Dosage: 10 ML, UNK
     Dates: start: 20041202, end: 20041202
  6. PROHANCE [Suspect]
     Indication: NUCLEAR MAGNETIC RESONANCE IMAGING
  7. MAGNEVIST [Suspect]
     Indication: NUCLEAR MAGNETIC RESONANCE IMAGING ABDOMINAL
     Dosage: UNK
     Dates: start: 20020204, end: 20020204
  8. OPTIMARK [Suspect]
     Indication: ANGIOGRAM
  9. MULTIHANCE [Suspect]
     Indication: ANGIOGRAM
  10. CARDURA [Concomitant]
  11. ASPIRIN [Concomitant]
     Dosage: 81 MG, QD
  12. NORVASC [Concomitant]
     Dosage: 10 MG, BID
  13. MAGNEVIST [Suspect]
     Indication: ANGIOGRAM
     Dosage: UNK
     Dates: start: 20010517, end: 20010517
  14. OMNISCAN [Suspect]
     Indication: ANGIOGRAM
  15. MULTIHANCE [Suspect]
     Indication: NUCLEAR MAGNETIC RESONANCE IMAGING
  16. DEMADEX [Concomitant]
  17. ZETIA [Concomitant]
     Dosage: 10 MG, QD
  18. SPIRONOLACTONE [Concomitant]
     Dosage: 20 MG, QD
  19. CLONIDINE [Concomitant]
     Dosage: 0.1 MG, Q4HR
  20. DILTIAZEM [Concomitant]
     Dosage: 180 MG, QD
     Route: 048
  21. MAGNEVIST [Suspect]
     Indication: NUCLEAR MAGNETIC RESONANCE IMAGING
     Dosage: 10 ML, ONCE
     Dates: start: 20060825, end: 20060825
  22. MAGNEVIST [Suspect]
     Indication: STENT PLACEMENT
     Dosage: 20 ML, UNK
     Dates: start: 20030514, end: 20030514
  23. EPOGEN [Concomitant]
     Dosage: 20000 U, OW
     Dates: start: 20040501
  24. MAGNEVIST [Suspect]
     Indication: NUCLEAR MAGNETIC RESONANCE IMAGING BRAIN
     Dosage: 20 ML, UNK
     Dates: start: 20020327, end: 20020327
  25. OMNISCAN [Suspect]
     Indication: NUCLEAR MAGNETIC RESONANCE IMAGING
  26. ISOSORBIDE DINITRATE [Concomitant]
  27. MAGNEVIST [Suspect]
     Dosage: 20 ML, UNK
     Dates: start: 20020909, end: 20020909
  28. MAGNEVIST [Suspect]
     Dosage: 20 ML, UNK
     Dates: start: 20041019, end: 20041019
  29. OPTIMARK [Suspect]
     Indication: NUCLEAR MAGNETIC RESONANCE IMAGING
  30. QUININE SULFATE [Concomitant]
     Dosage: UNK UNK, PRN
  31. LISINOPRIL [Concomitant]
  32. MINOXIDIL [Concomitant]
  33. NEPHROCAPS [Concomitant]
     Dosage: UNK UNK, QD

REACTIONS (20)
  - JOINT CONTRACTURE [None]
  - JOINT RANGE OF MOTION DECREASED [None]
  - BURNING SENSATION [None]
  - PAIN [None]
  - JOINT STIFFNESS [None]
  - SKIN LESION [None]
  - ASTHENIA [None]
  - SKIN TIGHTNESS [None]
  - DRY SKIN [None]
  - SKIN INDURATION [None]
  - FIBROSIS [None]
  - SKIN FIBROSIS [None]
  - MUSCULOSKELETAL STIFFNESS [None]
  - PRURITUS [None]
  - PEAU D'ORANGE [None]
  - EXTREMITY CONTRACTURE [None]
  - CARDIOVASCULAR DISORDER [None]
  - NEPHROGENIC SYSTEMIC FIBROSIS [None]
  - GAIT DISTURBANCE [None]
  - SKIN DISCOLOURATION [None]
